FAERS Safety Report 4369176-9 (Version None)
Quarter: 2004Q2

REPORT INFORMATION
  Report Type: 
  Country: None (occurrence: None)
  Receive Date: 20040528
  Receipt Date: 20040518
  Transmission Date: 20050107
  Serious: Yes (Life-Threatening)
  Sender: FDA-Public Use
  Company Number: GB-JNJFOC-20040503847

PATIENT
  Age: 59 Year
  Sex: Male

DRUGS (5)
  1. TRAMADOL HCL [Suspect]
     Indication: OSTEOARTHRITIS
     Dosage: 50 MG, ORAL
     Route: 048
     Dates: start: 20040331, end: 20040421
  2. CELEBREX [Concomitant]
  3. CO-CODAMOL (PANADEINE CO [Concomitant]
  4. ISOSORBIDE MONOITRATE (ISOSORBIDE MONONITRATE [Concomitant]
  5. ATENOLOL [Concomitant]

REACTIONS (1)
  - ANGINA PECTORIS [None]
